FAERS Safety Report 5276668-7 (Version None)
Quarter: 2007Q1

REPORT INFORMATION
  Report Type: 
  Country: None (occurrence: None)
  Receive Date: 20070327
  Receipt Date: 20070314
  Transmission Date: 20070707
  Serious: Yes (Death)
  Sender: FDA-Public Use
  Company Number: ES-NOVOPROD-261315

PATIENT
  Age: 53 Year
  Sex: Male
  Weight: 80 kg

DRUGS (1)
  1. NOVOSEVEN [Suspect]
     Indication: HAEMORRHAGE CONTROL
     Dosage: 40 MCG/KG 3 VIALS OF 1.2 MG
     Dates: start: 20060925

REACTIONS (4)
  - GASTROINTESTINAL NECROSIS [None]
  - MULTI-ORGAN FAILURE [None]
  - SEPTIC SHOCK [None]
  - VENOUS THROMBOSIS [None]
